FAERS Safety Report 8536388-X (Version None)
Quarter: 2012Q3

REPORT INFORMATION
  Report Type: 
  Country: None (occurrence: None)
  Receive Date: 20120725
  Receipt Date: 20120719
  Transmission Date: 20120928
  Serious: Yes (Hospitalization, Other)
  Sender: FDA-Public Use
  Company Number: US-ROCHE-1074362

PATIENT
  Sex: Male
  Weight: 89.7 kg

DRUGS (5)
  1. AVASTIN [Suspect]
     Indication: PROSTATE CANCER
     Dosage: OVER 30 - 90 MINUTES ON DAY 1
     Route: 042
     Dates: start: 20100727
  2. DOCETAXEL [Suspect]
     Indication: PROSTATE CANCER
     Dosage: OVER 60 MINUTES ON DAY 1
     Route: 042
     Dates: start: 20100727
  3. AMOXICILLIN [Suspect]
     Indication: PRODUCT USED FOR UNKNOWN INDICATION
  4. LENALIDOMIDE [Suspect]
     Indication: PROSTATE CANCER
     Dosage: ON DAY 1 - 14
     Route: 048
     Dates: start: 20100727
  5. PREDNISONE [Suspect]
     Indication: PROSTATE CANCER
     Route: 048
     Dates: start: 20100727

REACTIONS (8)
  - SYNCOPE [None]
  - NEUTROPHIL COUNT DECREASED [None]
  - DIARRHOEA [None]
  - HYPOXIA [None]
  - FATIGUE [None]
  - DYSPNOEA [None]
  - NAUSEA [None]
  - WHEEZING [None]
